FAERS Safety Report 21939236 (Version 1)
Quarter: 2023Q1

REPORT INFORMATION
  Report Type: Spontaneous
  Country: HU (occurrence: HU)
  Receive Date: 20230201
  Receipt Date: 20230201
  Transmission Date: 20230418
  Serious: Yes (Other)
  Sender: FDA-Public Use
  Company Number: HU-EXELIXIS-CABO-22057126

PATIENT
  Age: 73 Year

DRUGS (4)
  1. CABOMETYX [Suspect]
     Active Substance: CABOZANTINIB S-MALATE
     Indication: Renal cell carcinoma
     Dosage: 60 MG, QD
     Route: 048
     Dates: start: 2021
  2. CABOMETYX [Suspect]
     Active Substance: CABOZANTINIB S-MALATE
     Dosage: 40 MG, QD
     Route: 048
  3. CABOMETYX [Suspect]
     Active Substance: CABOZANTINIB S-MALATE
     Dosage: 20 MG, QD
     Route: 048
  4. LEVOTHYROXINE [Concomitant]
     Active Substance: LEVOTHYROXINE
     Indication: Hypothyroidism
     Dosage: UNK

REACTIONS (3)
  - Palmar-plantar erythrodysaesthesia syndrome [Unknown]
  - Diarrhoea [Not Recovered/Not Resolved]
  - Hypocalcaemia [Recovered/Resolved]
